FAERS Safety Report 7601227-8 (Version None)
Quarter: 2011Q3

REPORT INFORMATION
  Report Type: 
  Country: None (occurrence: None)
  Receive Date: 20110711
  Receipt Date: 20110627
  Transmission Date: 20111222
  Serious: Yes (Hospitalization)
  Sender: FDA-Public Use
  Company Number: FR-TEVA-274287ISR

PATIENT
  Sex: Female
  Weight: 73 kg

DRUGS (4)
  1. DIAZEPAM [Suspect]
     Dates: start: 20030314
  2. DEPAMIDE 300 MG, COMPRIME PELLICULE GASTRO-RESISTANT [Concomitant]
     Indication: EPILEPSY
     Dosage: 1200 MILLIGRAM;
     Route: 048
  3. DEROXAT 20 MG, COMPRIME PELLICULE SECABLE [Concomitant]
     Indication: MENTAL DISORDER
     Dosage: 40 MILLIGRAM;
     Route: 048
  4. DIAZEPAM [Suspect]
     Indication: ANXIETY
     Dosage: 15 MILLIGRAM;
     Dates: start: 20100401

REACTIONS (7)
  - TACHYCARDIA [None]
  - BLOOD PRESSURE ABNORMAL [None]
  - VERTIGO [None]
  - ANXIETY [None]
  - SKIN DISCOLOURATION [None]
  - ACCIDENTAL OVERDOSE [None]
  - HEADACHE [None]
